FAERS Safety Report 7555227-7 (Version None)
Quarter: 2011Q2

REPORT INFORMATION
  Report Type: 
  Country: None (occurrence: None)
  Receive Date: 20110617
  Receipt Date: 20100621
  Transmission Date: 20111010
  Serious: No
  Sender: FDA-Public Use
  Company Number: US-MYLANLABS-2010S1011169

PATIENT
  Age: 60 Year
  Sex: Male

DRUGS (1)
  1. METHOTREXATE [Suspect]
     Indication: PSORIASIS
     Route: 048
     Dates: end: 20100501

REACTIONS (6)
  - ALOPECIA [None]
  - PURPURA [None]
  - PRURITUS [None]
  - DIZZINESS [None]
  - PETECHIAE [None]
  - THROMBOCYTOPENIA [None]
